FAERS Safety Report 4644931-6 (Version None)
Quarter: 2005Q2

REPORT INFORMATION
  Report Type: 
  Country: None (occurrence: None)
  Receive Date: 20050422
  Receipt Date: 20050412
  Transmission Date: 20051028
  Serious: Yes (Hospitalization)
  Sender: FDA-Public Use
  Company Number: 213144

PATIENT
  Age: 77 Year
  Sex: Female
  Weight: 70 kg

DRUGS (10)
  1. RITUXIMAB (RITUXIMAB) CONC FOR SOLUTION FOR INFUSION [Suspect]
     Indication: CHRONIC LYMPHOCYTIC LEUKAEMIA
     Dosage: 500 MG/M2, INTRAVENOUS
     Route: 042
     Dates: start: 20050308, end: 20050308
  2. FLUDARABINE PHOSPHATE [Suspect]
     Indication: CHRONIC LYMPHOCYTIC LEUKAEMIA
     Dosage: 25 MG/M2, INTRAVENOUS
     Route: 042
     Dates: start: 20050308, end: 20050310
  3. CYCLOPHOSPHAMIDE [Suspect]
     Indication: CHRONIC LYMPHOCYTIC LEUKAEMIA
     Dosage: 350 MG/M2, INTRAVENOUS
     Route: 042
     Dates: start: 20050308, end: 20050310
  4. ACYCLOVIR [Concomitant]
  5. TRIMETHOPRIM + SULFAMETHOXAZOLE [Concomitant]
  6. ALLOPURINOL [Concomitant]
  7. AMLODIPINE BESYLATE [Concomitant]
  8. NITROGLYCERIN [Concomitant]
  9. HIDROCHLOROTHIAZIDE (HYDROCHLOROTHIAZIDE) [Concomitant]
  10. ATENOLOL [Concomitant]

REACTIONS (2)
  - HAEMOLYTIC ANAEMIA [None]
  - NEUTROPENIA [None]
